FAERS Safety Report 9250627 (Version 1)
Quarter: 2013Q1

REPORT INFORMATION
  Report Type: Spontaneous
  Country: US (occurrence: None)
  Receive Date: 20130305
  Receipt Date: 20130305
  Transmission Date: 20140127
  Serious: Yes (Other)
  Sender: FDA-Public Use
  Company Number: 163-21880-12082409

PATIENT
  Age: 64 Year
  Sex: Female
  Weight: 61.2 kg

DRUGS (4)
  1. REVLIMID [Suspect]
     Indication: MYELOFIBROSIS
     Dosage: 10 MG, 28 IN 28 D, PO
     Route: 048
     Dates: start: 20080115
  2. ZANTAC (RANITIDINE HYDROCHLORIDE) [Concomitant]
  3. ALIGN (BIFIDOBACTERIUM INFANTIS) [Concomitant]
  4. ACIPHEX (RABEPRAZOLE SODIUM) [Concomitant]

REACTIONS (3)
  - Diarrhoea [None]
  - Anaemia [None]
  - Neuropathy peripheral [None]
